FAERS Safety Report 4504326-2 (Version None)
Quarter: 2004Q4

REPORT INFORMATION
  Report Type: 
  Country: None (occurrence: None)
  Receive Date: 20041118
  Receipt Date: 20041105
  Transmission Date: 20050328
  Serious: Yes (Hospitalization)
  Sender: FDA-Public Use
  Company Number: 200413336EU

PATIENT
  Age: 50 Year
  Sex: Female

DRUGS (2)
  1. KETEK [Suspect]
     Indication: BRONCHITIS
     Route: 048
     Dates: start: 20041001, end: 20041006
  2. KETEK [Suspect]
     Indication: INFLUENZA LIKE ILLNESS
     Route: 048
     Dates: start: 20041001, end: 20041006

REACTIONS (12)
  - ABASIA [None]
  - BONE PAIN [None]
  - BRONCHITIS CHRONIC [None]
  - DIARRHOEA [None]
  - DYSGEUSIA [None]
  - DYSPNOEA [None]
  - FATIGUE [None]
  - MALAISE [None]
  - NERVOUSNESS [None]
  - PALPITATIONS [None]
  - SINUS TACHYCARDIA [None]
  - TACHYCARDIA [None]
